FAERS Safety Report 9702228 (Version 4)
Quarter: 2014Q1

REPORT INFORMATION
  Report Type: Spontaneous
  Country: DE (occurrence: DE)
  Receive Date: 20131121
  Receipt Date: 20140213
  Transmission Date: 20141002
  Serious: Yes (Other)
  Sender: FDA-Public Use
  Company Number: DE-JNJFOC-20131104534

PATIENT
  Age: 70 Year
  Sex: Female

DRUGS (5)
  1. XEPLION [Suspect]
     Indication: SCHIZOPHRENIA, PARANOID TYPE
     Route: 030
     Dates: start: 201203, end: 201311
  2. FUROSEMID [Concomitant]
     Route: 065
  3. ACETYLSALICYLIC ACID [Concomitant]
     Indication: PRODUCT USED FOR UNKNOWN INDICATION
     Route: 065
  4. BISOPROLOL [Concomitant]
     Route: 065
  5. CLEXANE [Concomitant]
     Route: 058

REACTIONS (10)
  - Pancytopenia [Recovering/Resolving]
  - Cerebellar syndrome [Unknown]
  - Leukaemia [Unknown]
  - Atrial flutter [Unknown]
  - Electrocardiogram change [Unknown]
  - Mucosal discolouration [Unknown]
  - Pallor [Unknown]
  - Goitre [Unknown]
  - Tremor [Unknown]
  - General physical health deterioration [Unknown]
